FAERS Safety Report 7949372-1 (Version None)
Quarter: 2011Q4

REPORT INFORMATION
  Report Type: 
  Country: None (occurrence: None)
  Receive Date: 20111130
  Receipt Date: 20111122
  Transmission Date: 20120403
  Serious: Yes (Hospitalization)
  Sender: FDA-Public Use
  Company Number: US-GLAXOSMITHKLINE-A0899913A

PATIENT
  Age: 13 Year
  Sex: Male
  Weight: 24.8 kg

DRUGS (1)
  1. PAZOPANIB [Suspect]
     Indication: SARCOMA METASTATIC
     Dosage: 450MGM2 PER DAY
     Route: 048
     Dates: start: 20101104, end: 20101130

REACTIONS (3)
  - PAIN IN EXTREMITY [None]
  - PERIPHERAL SENSORY NEUROPATHY [None]
  - BACK PAIN [None]
